FAERS Safety Report 14212851 (Version 1)
Quarter: 2017Q4

REPORT INFORMATION
  Report Type: Spontaneous
  Country: SE (occurrence: SE)
  Receive Date: 20171122
  Receipt Date: 20171122
  Transmission Date: 20180321
  Serious: Yes (Death, Other)
  Sender: FDA-Public Use
  Company Number: SE-PFIZER INC-2017495334

PATIENT
  Age: 85 Year
  Sex: Male

DRUGS (7)
  1. NOVOMIX [Concomitant]
     Active Substance: INSULIN ASPART
     Dosage: UNK
  2. SERTRALINE HCL [Suspect]
     Active Substance: SERTRALINE HYDROCHLORIDE
     Dosage: UNK
     Dates: start: 201701
  3. TROMBYL [Concomitant]
     Active Substance: ASPIRIN
     Dosage: UNK
  4. FINASTERIDE. [Concomitant]
     Active Substance: FINASTERIDE
     Dosage: UNK
  5. SOTALOL. [Suspect]
     Active Substance: SOTALOL
     Dosage: UNK
     Dates: start: 2006
  6. MIMPARA [Suspect]
     Active Substance: CINACALCET HYDROCHLORIDE
     Indication: HYPERPARATHYROIDISM
     Dosage: UNK
     Dates: start: 201704
  7. LOSARTAN. [Concomitant]
     Active Substance: LOSARTAN
     Dosage: UNK

REACTIONS (7)
  - Back pain [Unknown]
  - Abdominal pain upper [Unknown]
  - Nausea [Unknown]
  - Gastric haemorrhage [Fatal]
  - Haematemesis [Unknown]
  - Blood glucose decreased [Unknown]
  - Vomiting [Unknown]

NARRATIVE: CASE EVENT DATE: 201707
